FAERS Safety Report 10279661 (Version 1)
Quarter: 2014Q3

REPORT INFORMATION
  Report Type: Other
  Country: FR (occurrence: FR)
  Receive Date: 20140707
  Receipt Date: 20140707
  Transmission Date: 20150326
  Serious: Yes (Hospitalization)
  Sender: FDA-Public Use
  Company Number: FR-ASTELLAS-2014EU009198

PATIENT
  Age: 27 Year
  Sex: Male

DRUGS (1)
  1. ADVAGRAF [Suspect]
     Active Substance: TACROLIMUS
     Indication: PRODUCT USED FOR UNKNOWN INDICATION
     Dosage: UNK, UNKNOWN FREQ.
     Route: 048
     Dates: start: 201304, end: 201401

REACTIONS (2)
  - Myalgia [Recovered/Resolved]
  - Peripheral sensorimotor neuropathy [Recovered/Resolved]

NARRATIVE: CASE EVENT DATE: 201304
